FAERS Safety Report 8806771 (Version 2)
Quarter: 2012Q4

REPORT INFORMATION
  Report Type: Spontaneous
  Country: GB (occurrence: None)
  Receive Date: 20120919
  Receipt Date: 20121004
  Transmission Date: 20130627
  Serious: Yes (Other)
  Sender: FDA-Public Use
  Company Number: 2012SUN00009

PATIENT
  Sex: Female

DRUGS (2)
  1. LETROZOLE [Suspect]
     Indication: DRUG USE FOR UNKNOWN INDICATION
     Dates: start: 2011
  2. FOSAMAX (ALENDRONATE SODIUM) [Suspect]
     Indication: DRUG USE FOR UNKNOWN INDICATION
     Dates: start: 201108

REACTIONS (10)
  - Monoplegia [None]
  - Bone pain [None]
  - Condition aggravated [None]
  - Spinal compression fracture [None]
  - Drug interaction [None]
  - Arthralgia [None]
  - Migraine [None]
  - Myalgia [None]
  - Osteoporosis [None]
  - Aphasia [None]
